FAERS Safety Report 25630555 (Version 2)
Quarter: 2025Q3

REPORT INFORMATION
  Report Type: Spontaneous
  Country: US (occurrence: US)
  Receive Date: 20250801
  Receipt Date: 20250814
  Transmission Date: 20251020
  Serious: Yes (Other)
  Sender: NOVO NORDISK
  Company Number: US-NOVOPROD-1489207

PATIENT
  Age: 68 Year
  Sex: Female

DRUGS (4)
  1. WEGOVY [Suspect]
     Active Substance: SEMAGLUTIDE
     Indication: Weight control
     Dosage: 0.25 MG, QW
     Route: 058
     Dates: start: 20250630
  2. WEGOVY [Suspect]
     Active Substance: SEMAGLUTIDE
     Indication: Blood glucose decreased
  3. WEGOVY [Suspect]
     Active Substance: SEMAGLUTIDE
     Indication: Blood pressure decreased
  4. WEGOVY [Suspect]
     Active Substance: SEMAGLUTIDE
     Indication: Blood cholesterol decreased

REACTIONS (3)
  - Cataract [Unknown]
  - Gastrooesophageal reflux disease [Recovered/Resolved]
  - Off label use [Unknown]

NARRATIVE: CASE EVENT DATE: 20250701
